FAERS Safety Report 22617132 (Version 2)
Quarter: 2023Q2

REPORT INFORMATION
  Report Type: Spontaneous
  Country: CA (occurrence: CA)
  Receive Date: 20230620
  Receipt Date: 20230626
  Transmission Date: 20230722
  Serious: Yes (Other)
  Sender: FDA-Public Use
  Company Number: CA-CELLTRION INC.-2023CA010505

PATIENT

DRUGS (12)
  1. INFLECTRA [Suspect]
     Active Substance: INFLIXIMAB-DYYB
     Indication: Crohn^s disease
     Dosage: 5 MG/KG, W0, W2, W6 AND THEN EVERY 8 WEEKS
     Route: 042
     Dates: start: 20230427
  2. INFLECTRA [Suspect]
     Active Substance: INFLIXIMAB-DYYB
     Dosage: 400 MG, W0, W2, W6 AND THEN EVERY 8 WEEKS [AFTER 2 WEEKS]
     Route: 042
     Dates: start: 20230512
  3. INFLECTRA [Suspect]
     Active Substance: INFLIXIMAB-DYYB
     Dosage: 400MG (5MG/KG ROUNDED), AFTER 4 WEEKS (INDUCTION W6)
     Route: 042
     Dates: start: 20230614
  4. ASPIRIN [Concomitant]
     Active Substance: ASPIRIN
     Dosage: 80 MG
  5. CYCLOBENZAPRINE [Concomitant]
     Active Substance: CYCLOBENZAPRINE
     Dosage: UNK, AS NEEDED,PRN
  6. ENTOCORT [Concomitant]
     Active Substance: BUDESONIDE
     Dosage: 1 DF
     Dates: start: 202301
  7. MAGNESIUM [Concomitant]
     Active Substance: MAGNESIUM
     Dosage: 250 MG
  8. PANTOPRAZOLE [Concomitant]
     Active Substance: PANTOPRAZOLE
     Dosage: 20 MG
  9. PENTASA [Concomitant]
     Active Substance: MESALAMINE
     Dosage: 1 DF
     Dates: start: 2000
  10. RANITIDINE [Concomitant]
     Active Substance: RANITIDINE
     Dosage: UNK, AS NEEDED, PRN
  11. SUMATRIPTAN [Concomitant]
     Active Substance: SUMATRIPTAN
     Dosage: UNK, AS NEEDED, PRN
  12. VITAMIN B12 [Concomitant]
     Active Substance: CYANOCOBALAMIN
     Dosage: UNK

REACTIONS (7)
  - Urinary tract infection bacterial [Recovered/Resolved]
  - Nasal congestion [Recovered/Resolved]
  - Eye pruritus [Not Recovered/Not Resolved]
  - Oropharyngeal pain [Recovered/Resolved]
  - Headache [Unknown]
  - Fatigue [Not Recovered/Not Resolved]
  - Dysuria [Recovered/Resolved]

NARRATIVE: CASE EVENT DATE: 20230401
